FAERS Safety Report 8410093-2 (Version None)
Quarter: 2012Q2

REPORT INFORMATION
  Report Type: 
  Country: None (occurrence: None)
  Receive Date: 20120605
  Receipt Date: 20120530
  Transmission Date: 20120825
  Serious: Yes (Hospitalization)
  Sender: FDA-Public Use
  Company Number: US-BAYER-2012-050092

PATIENT
  Age: 21 Year
  Sex: Female
  Weight: 95.238 kg

DRUGS (4)
  1. NAPROXEN [Concomitant]
     Indication: MUSCLE SPASMS
     Dosage: UNK
     Route: 048
     Dates: start: 20110801, end: 20120401
  2. FIORICET [Concomitant]
     Indication: MIGRAINE
     Dosage: 50-325-40 MG
     Route: 048
     Dates: start: 20110501
  3. NAPROXEN [Concomitant]
     Indication: MIGRAINE
  4. DROSPIRENONE AND ETHINYL ESTRADIOL [Suspect]
     Indication: CONTRACEPTION
     Dosage: UNK
     Dates: start: 20111101, end: 20120401

REACTIONS (7)
  - DEEP VEIN THROMBOSIS [None]
  - GENERAL PHYSICAL HEALTH DETERIORATION [None]
  - EMOTIONAL DISTRESS [None]
  - INJURY [None]
  - ANXIETY [None]
  - ANHEDONIA [None]
  - PAIN [None]
